FAERS Safety Report 11751785 (Version 1)
Quarter: 2015Q4

REPORT INFORMATION
  Report Type: Spontaneous
  Country: US (occurrence: US)
  Receive Date: 20151118
  Receipt Date: 20151118
  Transmission Date: 20160304
  Serious: Yes (Hospitalization)
  Sender: FDA-Public Use
  Company Number: US-VALIDUS PHARMACEUTICALS LLC-US-2015VAL000706

PATIENT
  Age: 30 Year
  Sex: Female

DRUGS (10)
  1. ALDACTONE [Suspect]
     Active Substance: SPIRONOLACTONE
     Indication: HYPERTENSION
     Dosage: UNK
  2. METYRAPONE [Concomitant]
     Active Substance: METYRAPONE
     Dosage: 1250 MG, EVERY 6 HOURS
     Route: 048
  3. SPIRONOLACTONE. [Concomitant]
     Active Substance: SPIRONOLACTONE
     Dosage: 100 MG, EVERY 6 HOURS
     Route: 048
  4. METOPROLOL TARTRATE. [Suspect]
     Active Substance: METOPROLOL TARTRATE
     Indication: HYPERTENSION
     Dosage: UNK
  5. LISINOPRIL. [Suspect]
     Active Substance: LISINOPRIL
     Indication: HYPERTENSION
     Dosage: UNK
  6. DOXORUBICIN [Concomitant]
     Active Substance: DOXORUBICIN
     Dosage: UNK
  7. ETOMIDATE. [Concomitant]
     Active Substance: ETOMIDATE
     Indication: HYPERTENSION
     Dosage: 0.1 MG/KG PER MIN
  8. CYCLOPHOSPHAMIDE. [Concomitant]
     Active Substance: CYCLOPHOSPHAMIDE
     Dosage: UNK
  9. PACLITAXEL. [Concomitant]
     Active Substance: PACLITAXEL
     Dosage: UNK
  10. MIFEPRISTONE [Suspect]
     Active Substance: MIFEPRISTONE
     Indication: CUSHING^S SYNDROME
     Dosage: UNK

REACTIONS (6)
  - Bone lesion [None]
  - Liver disorder [None]
  - Drug ineffective [None]
  - Metastases to lung [None]
  - Hypertension [Recovering/Resolving]
  - Respiratory failure [None]
